FAERS Safety Report 6992938-6 (Version None)
Quarter: 2010Q3

REPORT INFORMATION
  Report Type: 
  Country: None (occurrence: None)
  Receive Date: 20100917
  Receipt Date: 20100908
  Transmission Date: 20110219
  Serious: Yes (Other)
  Sender: FDA-Public Use
  Company Number: US-SANOFI-AVENTIS-2010SA054358

PATIENT
  Age: 72 Year
  Sex: Female
  Weight: 85 kg

DRUGS (4)
  1. MULTAQ [Suspect]
     Indication: ATRIAL FIBRILLATION
     Route: 048
     Dates: start: 20090801
  2. COUMADIN [Concomitant]
  3. RAMIPRIL [Concomitant]
     Dosage: 120MG IN AM AND 240MG IN PM
  4. ACETAMINOPHEN [Concomitant]
     Indication: PAIN

REACTIONS (1)
  - ATRIAL FIBRILLATION [None]
